FAERS Safety Report 22353329 (Version 1)
Quarter: 2023Q2

REPORT INFORMATION
  Report Type: Spontaneous
  Country: GB (occurrence: GB)
  Receive Date: 20230523
  Receipt Date: 20230523
  Transmission Date: 20230722
  Serious: Yes (Other)
  Sender: FDA-Public Use
  Company Number: GB-Accord-308926

PATIENT
  Age: 75 Year
  Sex: Male

DRUGS (1)
  1. PIRFENIDONE [Suspect]
     Active Substance: PIRFENIDONE
     Indication: Product used for unknown indication
     Dosage: 3 TDS
     Route: 065
     Dates: start: 202301, end: 20230331

REACTIONS (2)
  - Cerebrovascular accident [Unknown]
  - Rash [Unknown]
